FAERS Safety Report 19603696 (Version 2)
Quarter: 2021Q3

REPORT INFORMATION
  Report Type: Report from Study
  Country: DE (occurrence: DE)
  Receive Date: 20210723
  Receipt Date: 20210927
  Transmission Date: 20211014
  Serious: Yes (Death, Hospitalization, Other)
  Sender: FDA-Public Use
  Company Number: DE-MYLANLABS-2021M1043700

PATIENT
  Age: 69 Year
  Sex: Female
  Weight: 93 kg

DRUGS (3)
  1. KISQALI [Suspect]
     Active Substance: RIBOCICLIB
     Indication: BREAST CANCER
     Dosage: 200 MILLIGRAM, QD (200 MG, QD ,(DAILY DOSE)(SCHEMA 21 DAYS INTAKE, 7 DAYS PAUSE)   )
     Route: 048
     Dates: start: 20200603
  2. KISQALI [Suspect]
     Active Substance: RIBOCICLIB
     Dosage: 600 MILLIGRAM, QD (600 MG, QD (DAILY DOSE)(SCHEMA 21 DAYS INTAKE, 7 DAYS PAUSE))
     Route: 048
     Dates: start: 20200520, end: 20200602
  3. LETROZOLE. [Suspect]
     Active Substance: LETROZOLE
     Indication: BREAST CANCER
     Dosage: 2.5 MILLIGRAM (2.5 MG)
     Route: 048
     Dates: start: 20200519, end: 20200602

REACTIONS (8)
  - General physical health deterioration [Fatal]
  - Pleural effusion [Fatal]
  - Urinary tract infection [Fatal]
  - Renal failure [Fatal]
  - Restlessness [Not Recovered/Not Resolved]
  - Dyspnoea [Fatal]
  - Electrolyte imbalance [Fatal]
  - Multiple organ dysfunction syndrome [Fatal]

NARRATIVE: CASE EVENT DATE: 20200603
